FAERS Safety Report 19361263 (Version 1)
Quarter: 2021Q2

REPORT INFORMATION
  Report Type: Spontaneous
  Country: US (occurrence: US)
  Receive Date: 20210603
  Receipt Date: 20210603
  Transmission Date: 20210717
  Serious: Yes (Other)
  Sender: FDA-Public Use
  Company Number: US-SA-2021SA180548

PATIENT
  Age: 67 Year
  Sex: Female

DRUGS (1)
  1. ZANTAC [Suspect]
     Active Substance: RANITIDINE HYDROCHLORIDE
     Indication: DYSPEPSIA
     Dosage: 75 MG
     Dates: start: 198312, end: 201904

REACTIONS (3)
  - Lung carcinoma cell type unspecified stage IV [Recovering/Resolving]
  - Oesophageal carcinoma [Recovering/Resolving]
  - Gastric cancer stage IV [Recovering/Resolving]

NARRATIVE: CASE EVENT DATE: 20150701
